FAERS Safety Report 5049515-6 (Version None)
Quarter: 2006Q3

REPORT INFORMATION
  Report Type: 
  Country: None (occurrence: None)
  Receive Date: 20060712
  Receipt Date: 20060118
  Transmission Date: 20061208
  Serious: Yes (Other)
  Sender: FDA-Public Use
  Company Number: JP-NOVOPROD-250176

PATIENT
  Age: 64 Year
  Sex: Male
  Weight: 63 kg

DRUGS (8)
  1. PENFILL R CHU [Suspect]
     Indication: DIABETES MELLITUS
     Dosage: 30 IU, QD
     Route: 058
     Dates: start: 20051215
  2. HUMULIN 70/30 [Concomitant]
     Dosage: 5 IU, QD
     Route: 042
     Dates: start: 20051215
  3. TAKEPRON [Concomitant]
     Dosage: 30 MG, QD
     Route: 048
     Dates: start: 20051215
  4. HEPARIN SODIUM [Concomitant]
     Dosage: 10000 IU, UNK
     Route: 042
     Dates: start: 20051215
  5. LOPRESOR                           /00376902/ [Concomitant]
     Indication: ANGINA PECTORIS
     Dosage: 60 MG, QD
     Route: 048
  6. TANATRIL [Concomitant]
     Dosage: 5 MG, QD
     Route: 048
  7. ULCERLMIN [Concomitant]
     Dosage: 1 G, QD
     Route: 048
  8. NITOROL [Concomitant]
     Dosage: 15 MG, QD
     Route: 048

REACTIONS (1)
  - GRANULOCYTOPENIA [None]
